FAERS Safety Report 4404986-0 (Version None)
Quarter: 2004Q3

REPORT INFORMATION
  Report Type: 
  Country: None (occurrence: None)
  Receive Date: 20040715
  Receipt Date: 20040630
  Transmission Date: 20050211
  Serious: Yes (Hospitalization)
  Sender: FDA-Public Use
  Company Number: THYR-10065

PATIENT
  Age: 35 Year
  Sex: Female

DRUGS (4)
  1. THYROGEN [Suspect]
     Dosage: 0.9 MG QD IM
     Route: 030
     Dates: start: 20030106, end: 20030107
  2. SYNTHROID [Concomitant]
  3. ZOLOFT [Concomitant]
  4. TRAZODONE HCL [Concomitant]

REACTIONS (4)
  - CEREBROVASCULAR DISORDER [None]
  - DEEP VEIN THROMBOSIS [None]
  - GRAND MAL CONVULSION [None]
  - HEADACHE [None]
